FAERS Safety Report 19254051 (Version 2)
Quarter: 2021Q2

REPORT INFORMATION
  Report Type: Spontaneous
  Country: FR (occurrence: FR)
  Receive Date: 20210513
  Receipt Date: 20210513
  Transmission Date: 20210717
  Serious: Yes (Other)
  Sender: FDA-Public Use
  Company Number: FR-PFIZER INC-2021484560

PATIENT
  Age: 52 Year
  Sex: Female
  Weight: 57 kg

DRUGS (7)
  1. EPIRUBICIN HCL [Suspect]
     Active Substance: EPIRUBICIN HYDROCHLORIDE
     Indication: BREAST CANCER
     Dosage: 140 MG, CYCLIC
     Route: 042
     Dates: start: 20201214, end: 20210125
  2. IRBESARTAN. [Suspect]
     Active Substance: IRBESARTAN
     Indication: HYPERTENSION
     Dosage: 150 MG, DAILY
     Route: 048
  3. CYCLOPHOSPHAM [Suspect]
     Active Substance: CYCLOPHOSPHAMIDE
     Indication: BREAST CANCER
     Dosage: 800 MG, CYCLIC
     Route: 042
     Dates: start: 20201214, end: 20210125
  4. OLANZAPINE. [Suspect]
     Active Substance: OLANZAPINE
     Dosage: 5 MG, DAILY
     Route: 048
     Dates: start: 20210125, end: 20210127
  5. AKYNZEO [Suspect]
     Active Substance: NETUPITANT\PALONOSETRON HYDROCHLORIDE
     Indication: NAUSEA
     Dosage: 1 DF, SINGLE
     Route: 048
     Dates: start: 20210125, end: 20210125
  6. PREDNISOLONE ACETATE. [Suspect]
     Active Substance: PREDNISOLONE ACETATE
     Indication: PROPHYLAXIS OF NAUSEA AND VOMITING
     Dosage: 60 MG, CYCLIC
     Route: 048
     Dates: start: 20201214, end: 20210125
  7. FILGRASTIM [Suspect]
     Active Substance: FILGRASTIM
     Dosage: 5 DF, CYCLIC
     Route: 058
     Dates: start: 20201218

REACTIONS (2)
  - Vertigo [Not Recovered/Not Resolved]
  - Deafness neurosensory [Not Recovered/Not Resolved]

NARRATIVE: CASE EVENT DATE: 202102
